FAERS Safety Report 7320312-1 (Version None)
Quarter: 2011Q1

REPORT INFORMATION
  Report Type: 
  Country: None (occurrence: None)
  Receive Date: 20110228
  Receipt Date: 20110215
  Transmission Date: 20110831
  Serious: Yes (Hospitalization, Other)
  Sender: FDA-Public Use
  Company Number: US-ELI_LILLY_AND_COMPANY-US201004000743

PATIENT
  Sex: Female
  Weight: 40.8 kg

DRUGS (14)
  1. REMICADE [Concomitant]
     Indication: COLITIS
     Dates: start: 20091201
  2. METFORMIN [Concomitant]
  3. PRISTIQ [Concomitant]
  4. FUROSEMIDE [Concomitant]
  5. ASPIRIN [Concomitant]
  6. FORTEO [Suspect]
     Indication: OSTEOPOROSIS
     Dosage: 20 UG, DAILY (1/D)
     Route: 058
     Dates: start: 20100401
  7. PREDNISONE [Concomitant]
  8. PHENYTOIN [Concomitant]
  9. LOVASTATIN [Concomitant]
  10. FORTEO [Suspect]
     Dosage: 20 UG, DAILY (1/D)
     Route: 058
     Dates: start: 20101205
  11. DILANTIN [Concomitant]
  12. VITAMIN D [Concomitant]
  13. MERCAPTOPURINE [Concomitant]
  14. SEROQUEL [Concomitant]

REACTIONS (5)
  - NAUSEA [None]
  - CROHN'S DISEASE [None]
  - HYPOPHAGIA [None]
  - ULCER [None]
  - HOSPITALISATION [None]
